FAERS Safety Report 6326596-0 (Version None)
Quarter: 2009Q3

REPORT INFORMATION
  Report Type: 
  Country: None (occurrence: None)
  Receive Date: 20090825
  Receipt Date: 20090821
  Transmission Date: 20100115
  Serious: Yes (Life-Threatening, Hospitalization, Disabling, Other)
  Sender: FDA-Public Use
  Company Number: GB-BRISTOL-MYERS SQUIBB COMPANY-14712830

PATIENT
  Age: 65 Year
  Sex: Male
  Weight: 86 kg

DRUGS (12)
  1. SPRYCEL [Suspect]
     Indication: CHRONIC MYELOID LEUKAEMIA
     Route: 048
     Dates: start: 20070410, end: 20081205
  2. FUROSEMIDE [Concomitant]
     Indication: PLEURAL EFFUSION
     Dosage: ALSO INTRAVENOUS 80 MG /D
     Route: 048
     Dates: start: 20081205, end: 20081230
  3. FUROSEMIDE [Concomitant]
     Indication: SEPSIS
     Dosage: ALSO INTRAVENOUS 80 MG /D
     Route: 048
     Dates: start: 20081205, end: 20081230
  4. AUGMENTIN [Concomitant]
     Indication: SEPSIS
     Dosage: 1 DF = AMOXICILLIN 500MG + CLAVULANIC ACID 125 MG
     Route: 048
     Dates: start: 20081205, end: 20081230
  5. TAZOCIN [Concomitant]
     Indication: SEPSIS
     Route: 042
     Dates: start: 20081205, end: 20081230
  6. GENTAMICIN [Concomitant]
     Indication: SEPSIS
     Route: 042
     Dates: start: 20081205, end: 20081230
  7. VANCOMYCIN [Concomitant]
     Indication: SEPSIS
     Route: 042
  8. MEROPENEM [Concomitant]
     Indication: SEPSIS
     Route: 042
     Dates: start: 20081205, end: 20081230
  9. BISOPROLOL [Concomitant]
     Route: 048
  10. ASPIRIN [Concomitant]
  11. CARBAMAZEPINE [Concomitant]
  12. SIMVASTATIN [Concomitant]

REACTIONS (3)
  - PLEURAL HAEMORRHAGE [None]
  - PULMONARY FIBROSIS [None]
  - PYREXIA [None]
